FAERS Safety Report 9285478 (Version 1)
Quarter: 2013Q2

REPORT INFORMATION
  Report Type: Spontaneous
  Country: FR (occurrence: None)
  Receive Date: 20130506
  Receipt Date: 20130506
  Transmission Date: 20140414
  Serious: Yes (Other)
  Sender: FDA-Public Use
  Company Number: SYM-2013-03487

PATIENT
  Age: 72 Year
  Sex: Male

DRUGS (2)
  1. MONO-TILDIEM SR [Suspect]
     Indication: HYPERTENSION
     Route: 048
  2. ESIDREX [Concomitant]

REACTIONS (1)
  - Hepatic steatosis [None]
